FAERS Safety Report 16167562 (Version 3)
Quarter: 2021Q2

REPORT INFORMATION
  Report Type: Report from Study
  Country: US (occurrence: US)
  Receive Date: 20190408
  Receipt Date: 20210426
  Transmission Date: 20210716
  Serious: Yes (Hospitalization)
  Sender: FDA-Public Use
  Company Number: US-ROCHE-2293511

PATIENT
  Age: 62 Year
  Sex: Female
  Weight: 83.1 kg

DRUGS (1)
  1. BEVACIZUMAB. [Suspect]
     Active Substance: BEVACIZUMAB
     Indication: METASTASES TO CENTRAL NERVOUS SYSTEM
     Dosage: OVER 90 MINUTES EVERY 28 DAYS X 4 CYCLES?DATE OF MOST RECENT DOSE 4650 MG OF BEVACIZUMAB PRIOR TO EV
     Route: 042
     Dates: start: 20181211

REACTIONS (2)
  - Muscular weakness [Recovered/Resolved with Sequelae]
  - Confusional state [Recovered/Resolved with Sequelae]

NARRATIVE: CASE EVENT DATE: 20190313
